FAERS Safety Report 14415038 (Version 1)
Quarter: 2018Q1

REPORT INFORMATION
  Report Type: Spontaneous
  Country: US (occurrence: US)
  Receive Date: 20180118
  Receipt Date: 20180118
  Transmission Date: 20180509
  Serious: Yes (Other)
  Sender: FDA-Public Use
  Company Number: None

PATIENT
  Age: 69 Year
  Sex: Male
  Weight: 87.1 kg

DRUGS (1)
  1. LEUPROLIDE [Suspect]
     Active Substance: LEUPROLIDE
     Indication: PROSTATE CANCER
     Route: 058
     Dates: start: 20150519

REACTIONS (3)
  - Product dosage form issue [None]
  - Treatment failure [None]
  - Product measured potency issue [None]

NARRATIVE: CASE EVENT DATE: 20150519
